FAERS Safety Report 9760364 (Version 2)
Quarter: 2015Q3

REPORT INFORMATION
  Report Type: Spontaneous
  Country: US (occurrence: US)
  Receive Date: 20131216
  Receipt Date: 20150806
  Transmission Date: 20151125
  Serious: No
  Sender: FDA-Public Use
  Company Number: US-GILEAD-2010-0028994

PATIENT
  Age: 68 Year
  Sex: Female
  Weight: 74.84 kg

DRUGS (16)
  1. DARVOCET [Concomitant]
     Active Substance: ACETAMINOPHEN\PROPOXYPHENE HYDROCHLORIDE
  2. ZOLOFT [Concomitant]
     Active Substance: SERTRALINE HYDROCHLORIDE
  3. NIFEDIPINE. [Concomitant]
     Active Substance: NIFEDIPINE
  4. NORVASC [Concomitant]
     Active Substance: AMLODIPINE BESYLATE
  5. FOSAMAX [Concomitant]
     Active Substance: ALENDRONATE SODIUM
  6. LISINOPRIL. [Concomitant]
     Active Substance: LISINOPRIL
  7. OXYGEN. [Concomitant]
     Active Substance: OXYGEN
  8. PREDNISONE. [Concomitant]
     Active Substance: PREDNISONE
  9. ENABLEX [Concomitant]
     Active Substance: DARIFENACIN\DARIFENACIN HYDROBROMIDE
  10. LASIX [Concomitant]
     Active Substance: FUROSEMIDE
  11. CRESTOR [Concomitant]
     Active Substance: ROSUVASTATIN CALCIUM
  12. PREVACID [Concomitant]
     Active Substance: LANSOPRAZOLE
  13. COUMADIN [Concomitant]
     Active Substance: WARFARIN SODIUM
  14. ZANTAC [Concomitant]
     Active Substance: RANITIDINE HYDROCHLORIDE
  15. LETAIRIS [Suspect]
     Active Substance: AMBRISENTAN
     Indication: PULMONARY ARTERIAL HYPERTENSION
     Route: 048
     Dates: start: 20100413
  16. SIMVASTATIN. [Concomitant]
     Active Substance: SIMVASTATIN

REACTIONS (3)
  - Feeling jittery [Unknown]
  - Tremor [Unknown]
  - Diarrhoea [Unknown]
